FAERS Safety Report 23858600 (Version 4)
Quarter: 2025Q2

REPORT INFORMATION
  Report Type: Report from Study
  Country: CA (occurrence: CA)
  Receive Date: 20240515
  Receipt Date: 20250402
  Transmission Date: 20250717
  Serious: Yes (Other)
  Sender: TAKEDA
  Company Number: CA-TAKEDA-2022TUS099892

PATIENT
  Sex: Female

DRUGS (6)
  1. VEDOLIZUMAB [Suspect]
     Active Substance: VEDOLIZUMAB
     Indication: Colitis ulcerative
  2. VEDOLIZUMAB [Suspect]
     Active Substance: VEDOLIZUMAB
  3. METAMUCIL [Concomitant]
     Active Substance: PLANTAGO SEED
  4. IMODIUM [Concomitant]
     Active Substance: LOPERAMIDE HYDROCHLORIDE
  5. CYTOXAN [Concomitant]
     Active Substance: CYCLOPHOSPHAMIDE
  6. PREDNISONE [Concomitant]
     Active Substance: PREDNISONE

REACTIONS (4)
  - Immune-mediated enterocolitis [Unknown]
  - Colitis ulcerative [Unknown]
  - Defaecation urgency [Unknown]
  - Pain [Unknown]
